FAERS Safety Report 8603951 (Version 3)
Quarter: 2014Q1

REPORT INFORMATION
  Report Type: Spontaneous
  Country: US (occurrence: US)
  Receive Date: 20120608
  Receipt Date: 20140131
  Transmission Date: 20141002
  Serious: Yes (Other)
  Sender: FDA-Public Use
  Company Number: US-ASTRAZENECA-2012SE34993

PATIENT
  Age: 20615 Day
  Sex: Female
  Weight: 49.9 kg

DRUGS (17)
  1. NEXIUM [Suspect]
     Indication: GASTROOESOPHAGEAL REFLUX DISEASE
     Route: 048
     Dates: start: 20100615, end: 201206
  2. NEXIUM [Suspect]
     Indication: GASTROINTESTINAL PAIN
     Route: 048
     Dates: start: 20100615, end: 201206
  3. NEXIUM [Suspect]
     Indication: DYSPEPSIA
     Route: 048
     Dates: start: 20100615, end: 201206
  4. NEXIUM [Suspect]
     Indication: GASTROOESOPHAGEAL REFLUX DISEASE
     Route: 048
     Dates: start: 20131231
  5. NEXIUM [Suspect]
     Indication: GASTROINTESTINAL PAIN
     Route: 048
     Dates: start: 20131231
  6. NEXIUM [Suspect]
     Indication: DYSPEPSIA
     Route: 048
     Dates: start: 20131231
  7. PRILOSEC [Suspect]
     Indication: GASTROOESOPHAGEAL REFLUX DISEASE
     Dosage: 15MG-30MG ONCE A DAY
     Route: 048
     Dates: start: 2002
  8. PREVACID [Concomitant]
     Indication: GASTROOESOPHAGEAL REFLUX DISEASE
     Dates: start: 1996
  9. PROTONIX [Concomitant]
     Indication: GASTROOESOPHAGEAL REFLUX DISEASE
     Dates: start: 2013
  10. ZANTAC [Concomitant]
     Dates: start: 2003
  11. TAGAMET [Concomitant]
     Dates: start: 2004
  12. DEPAKOTE [Concomitant]
     Route: 048
     Dates: start: 20131231
  13. VALIUM [Concomitant]
     Route: 048
     Dates: start: 20131231
  14. SINGULAIR [Concomitant]
     Route: 048
     Dates: start: 20131231
  15. LEVOTHYROXINE [Concomitant]
     Route: 048
     Dates: start: 20131231
  16. DOCUSATE SODIUM [Concomitant]
     Route: 048
     Dates: start: 20131231
  17. OXYCODONE [Concomitant]
     Route: 048
     Dates: start: 20131231

REACTIONS (17)
  - Convulsion [Unknown]
  - Spinal compression fracture [Unknown]
  - Osteoporosis [Unknown]
  - Multiple fractures [Unknown]
  - Tibia fracture [Unknown]
  - Fibula fracture [Unknown]
  - Bone disorder [Unknown]
  - Fall [Unknown]
  - Ankylosing spondylitis [Unknown]
  - Arthritis [Unknown]
  - Cataract [Unknown]
  - Chronic obstructive pulmonary disease [Unknown]
  - Hypothyroidism [Unknown]
  - Rheumatoid arthritis [Unknown]
  - Scoliosis [Unknown]
  - HIV infection [Unknown]
  - Depression [Unknown]
